FAERS Safety Report 14772775 (Version 2)
Quarter: 2018Q2

REPORT INFORMATION
  Report Type: Spontaneous
  Country: US (occurrence: US)
  Receive Date: 20180418
  Receipt Date: 20180516
  Transmission Date: 20180711
  Serious: No
  Sender: FDA-Public Use
  Company Number: US-ASTRAZENECA-2018SE46512

PATIENT
  Age: 772 Month
  Sex: Female
  Weight: 104.3 kg

DRUGS (2)
  1. BYDUREON [Suspect]
     Active Substance: EXENATIDE
     Indication: TYPE 2 DIABETES MELLITUS
     Route: 058
     Dates: start: 2018
  2. FORXIGA [Suspect]
     Active Substance: DAPAGLIFLOZIN
     Indication: TYPE 2 DIABETES MELLITUS
     Dosage: DAILY
     Route: 048
     Dates: end: 201701

REACTIONS (5)
  - Intentional product misuse [Unknown]
  - Urinary tract infection [Unknown]
  - Injection site extravasation [Not Recovered/Not Resolved]
  - Nephrolithiasis [Unknown]
  - Device malfunction [Unknown]

NARRATIVE: CASE EVENT DATE: 201610
